FAERS Safety Report 4576103-8 (Version None)
Quarter: 2005Q1

REPORT INFORMATION
  Report Type: 
  Country: None (occurrence: None)
  Receive Date: 20050204
  Receipt Date: 20050121
  Transmission Date: 20050727
  Serious: Yes (Death)
  Sender: FDA-Public Use
  Company Number: S05-UKI-00359-01

PATIENT
  Age: 76 Year
  Sex: Female

DRUGS (4)
  1. MEMANTINE HCL [Suspect]
     Indication: DEMENTIA ALZHEIMER'S TYPE
     Dosage: 10 MG BID PO
     Route: 048
     Dates: start: 20030912, end: 20040924
  2. METFORMIN HCL [Concomitant]
  3. GLICLAZIDE (GLICLAZIDE) [Concomitant]
  4. PERINDOPRIL (PERINDOPRIL) [Concomitant]

REACTIONS (3)
  - CEREBROVASCULAR DISORDER [None]
  - RENAL FAILURE [None]
  - URINARY TRACT INFECTION [None]
